FAERS Safety Report 10159184 (Version 1)
Quarter: 2014Q2

REPORT INFORMATION
  Report Type: Spontaneous
  Country: US (occurrence: US)
  Receive Date: 20140508
  Receipt Date: 20140508
  Transmission Date: 20141212
  Serious: Yes (Hospitalization)
  Sender: FDA-Public Use
  Company Number: US-ROCHE-1395683

PATIENT
  Age: 55 Year
  Sex: Female

DRUGS (2)
  1. XELODA [Suspect]
     Indication: BREAST CANCER
     Route: 048
     Dates: start: 20140103, end: 20140318
  2. TYKERB [Concomitant]
     Indication: BREAST CANCER
     Route: 048
     Dates: start: 20140103, end: 20140502

REACTIONS (6)
  - Psychotic disorder [Unknown]
  - Cognitive disorder [Not Recovered/Not Resolved]
  - Confusional state [Unknown]
  - Amnesia [Not Recovered/Not Resolved]
  - Paranoia [Unknown]
  - Aggression [Unknown]
